FAERS Safety Report 21073229 (Version 1)
Quarter: 2022Q3

REPORT INFORMATION
  Report Type: Spontaneous
  Country: DE (occurrence: DE)
  Receive Date: 20220712
  Receipt Date: 20220712
  Transmission Date: 20221026
  Serious: Yes (Other)
  Sender: FDA-Public Use
  Company Number: DE-TEVA-2022-DE-2050274

PATIENT
  Age: 61 Year
  Sex: Male

DRUGS (1)
  1. TRACLEER [Suspect]
     Active Substance: BOSENTAN
     Indication: Product used for unknown indication
     Route: 065

REACTIONS (6)
  - Necrosis [Unknown]
  - Pain in extremity [Unknown]
  - Thermal burn [Unknown]
  - Onychomadesis [Unknown]
  - Skin discolouration [Unknown]
  - Burns second degree [Unknown]
